FAERS Safety Report 9288492 (Version 1)
Quarter: 2013Q2

REPORT INFORMATION
  Report Type: Spontaneous
  Country: NZ (occurrence: NZ)
  Receive Date: 20130514
  Receipt Date: 20130514
  Transmission Date: 20140414
  Serious: Yes (Other)
  Sender: FDA-Public Use
  Company Number: PHHY2013NZ047134

PATIENT
  Age: 54 Year
  Sex: Male

DRUGS (3)
  1. WARFARIN [Suspect]
     Indication: ANTICOAGULANT THERAPY
  2. DOXYCYCLINE [Suspect]
     Indication: BRONCHIECTASIS
     Route: 048
  3. ENOXAPARIN [Concomitant]

REACTIONS (8)
  - Calciphylaxis [Recovered/Resolved]
  - Rash [Recovered/Resolved]
  - Skin ulcer [Recovered/Resolved]
  - Pain [Recovered/Resolved]
  - Hyperplasia [Recovered/Resolved]
  - Fat necrosis [Recovered/Resolved]
  - Vascular calcification [Recovered/Resolved]
  - Hypovitaminosis [Unknown]
